FAERS Safety Report 11054696 (Version 1)
Quarter: 2015Q2

REPORT INFORMATION
  Report Type: Spontaneous
  Country: US (occurrence: US)
  Receive Date: 20150422
  Receipt Date: 20150422
  Transmission Date: 20150821
  Serious: Yes (Death, Hospitalization)
  Sender: FDA-Public Use
  Company Number: US-JNJFOC-2004071481

PATIENT
  Age: 46 Year
  Sex: Male

DRUGS (10)
  1. HALOPERIDOL. [Suspect]
     Active Substance: HALOPERIDOL
     Indication: SUICIDE ATTEMPT
     Dosage: DAILY DOSE TEXT: UNSPECIFIED
     Route: 048
  2. METHYLPHENIDATE [Suspect]
     Active Substance: METHYLPHENIDATE
     Indication: SUICIDE ATTEMPT
     Dosage: DAILY DOSE TEXT: UNSPECIFIED
     Route: 048
  3. DIPHENHYDRAMINE [Suspect]
     Active Substance: DIPHENHYDRAMINE
     Route: 048
  4. IBUPROFEN. [Suspect]
     Active Substance: IBUPROFEN
     Indication: SUICIDE ATTEMPT
     Dosage: DAILY DOSE TEXT: UNSPECIFIED
     Route: 048
  5. DIPHENHYDRAMINE [Suspect]
     Active Substance: DIPHENHYDRAMINE
     Indication: SUICIDE ATTEMPT
     Dosage: DAILY DOSE TEXT: UNSPECIFIED
     Route: 048
  6. CHLORZOXAZONE. [Suspect]
     Active Substance: CHLORZOXAZONE
     Indication: SUICIDE ATTEMPT
     Dosage: DAILY DOSE TEXT: UNSPECIFIED
     Route: 048
  7. CEFALEXIN [Suspect]
     Active Substance: CEPHALEXIN
     Indication: SUICIDE ATTEMPT
     Dosage: DAILY DOSE TEXT: UNSPECIFIED
     Route: 048
  8. CYCLOBENZAPRINE [Suspect]
     Active Substance: CYCLOBENZAPRINE
     Indication: SUICIDE ATTEMPT
     Dosage: DAILY DOSE TEXT: UNSPECIFIED
     Route: 048
  9. NAPROXEN. [Suspect]
     Active Substance: NAPROXEN
     Indication: SUICIDE ATTEMPT
     Dosage: DAILY DOSE TEXT: UNSPECIFIED
     Route: 048
  10. ETHANOL [Suspect]
     Active Substance: ALCOHOL
     Indication: SUICIDE ATTEMPT
     Dosage: DAILY DOSE TEXT: UNSPECIFIED
     Route: 048

REACTIONS (7)
  - Respiratory arrest [Fatal]
  - Intentional overdose [Fatal]
  - Electrocardiogram QRS complex shortened [Fatal]
  - Stupor [Fatal]
  - Intentional product misuse [Fatal]
  - Completed suicide [Fatal]
  - Blood disorder [Fatal]
